FAERS Safety Report 24922102 (Version 3)
Quarter: 2025Q3

REPORT INFORMATION
  Report Type: Report from Study
  Country: CA (occurrence: CA)
  Receive Date: 20250204
  Receipt Date: 20250728
  Transmission Date: 20251021
  Serious: Yes (Disabling, Other)
  Sender: BOEHRINGER INGELHEIM
  Company Number: CA-BoehringerIngelheim-2024-BI-041766

PATIENT
  Age: 44 Year
  Sex: Female
  Weight: 94.2 kg

DRUGS (1)
  1. OFEV [Suspect]
     Active Substance: NINTEDANIB
     Indication: Idiopathic pulmonary fibrosis

REACTIONS (5)
  - Thrombotic stroke [Recovering/Resolving]
  - Middle cerebral artery stroke [Recovering/Resolving]
  - Lung transplant [Unknown]
  - Abdominal pain upper [Recovered/Resolved]
  - Anxiety [Unknown]

NARRATIVE: CASE EVENT DATE: 20241230
